FAERS Safety Report 11312095 (Version 2)
Quarter: 2019Q4

REPORT INFORMATION
  Report Type: Spontaneous
  Country: CH (occurrence: CH)
  Receive Date: 20150727
  Receipt Date: 20191019
  Transmission Date: 20200122
  Serious: Yes (Congenital Anomaly)
  Sender: FDA-Public Use
  Company Number: CH-TEVA-579651ISR

PATIENT
  Age: 0 Year
  Sex: Female

DRUGS (3)
  1. MEPHAQUIN [Suspect]
     Active Substance: MEFLOQUINE
     Indication: MALARIA PROPHYLAXIS
     Dosage: THE SUSPECTED MEDICATION WAS TAKEN BY THE FATHER. DOSE UNKNOWN
     Route: 065
     Dates: start: 201308, end: 201309
  2. MALARONE [Suspect]
     Active Substance: ATOVAQUONE\PROGUANIL HYDROCHLORIDE
     Indication: MALARIA PROPHYLAXIS
     Dosage: THE SUSPECTED MEDICATION WAS TAKEN BY THE MOTHER. DOSE UNKNOWN
     Route: 065
     Dates: start: 201308, end: 201309
  3. TRAMADOL. [Suspect]
     Active Substance: TRAMADOL
     Indication: PROCEDURAL PAIN
     Dosage: IRREGULAR INTAKE. THE SUSPECTED MEDICATION WAS TAKEN BY THE FATHER
     Route: 065
     Dates: start: 201312, end: 201401

REACTIONS (3)
  - Paternal exposure timing unspecified [Recovered/Resolved]
  - Dysmorphism [Not Recovered/Not Resolved]
  - Maternal exposure during pregnancy [Recovered/Resolved]

NARRATIVE: CASE EVENT DATE: 201308
